APPROVED DRUG PRODUCT: METOCLOPRAMIDE HYDROCHLORIDE
Active Ingredient: METOCLOPRAMIDE HYDROCHLORIDE
Strength: EQ 5MG BASE
Dosage Form/Route: TABLET;ORAL
Application: A072215 | Product #002 | TE Code: AB
Applicant: AIPING PHARMACEUTICAL INC
Approved: Nov 5, 2024 | RLD: No | RS: No | Type: RX